FAERS Safety Report 13797860 (Version 3)
Quarter: 2018Q1

REPORT INFORMATION
  Report Type: Spontaneous
  Country: US (occurrence: US)
  Receive Date: 20170727
  Receipt Date: 20180326
  Transmission Date: 20180508
  Serious: No
  Sender: FDA-Public Use
  Company Number: US-009507513-1707USA005241

PATIENT
  Sex: Female

DRUGS (2)
  1. ZEPATIER [Suspect]
     Active Substance: ELBASVIR\GRAZOPREVIR
     Indication: HEPATITIS C
     Dosage: 1 TABLET EVERY DAY
     Route: 048
     Dates: start: 201705, end: 20170913
  2. METHADONE HYDROCHLORIDE. [Concomitant]
     Active Substance: METHADONE HYDROCHLORIDE
     Dosage: UNK

REACTIONS (5)
  - Cough [Unknown]
  - Nausea [Unknown]
  - Hypersensitivity [Unknown]
  - Mood altered [Unknown]
  - Rash pruritic [Unknown]

NARRATIVE: CASE EVENT DATE: 2017
